FAERS Safety Report 5426043-7 (Version None)
Quarter: 2007Q3

REPORT INFORMATION
  Report Type: 
  Country: None (occurrence: None)
  Receive Date: 20070824
  Receipt Date: 20070824
  Transmission Date: 20080115
  Serious: Yes (Hospitalization)
  Sender: FDA-Public Use
  Company Number: None

PATIENT
  Sex: Male
  Weight: 78 kg

DRUGS (2)
  1. CISPLATIN [Suspect]
     Indication: TONSIL CANCER
     Dosage: 100MG/M2 IV Q3WKS
     Route: 042
     Dates: start: 20070813
  2. CETUXIMAB [Suspect]
     Dosage: 250MG/M2 IV QW
     Route: 042
     Dates: start: 20070813

REACTIONS (6)
  - ABDOMINAL PAIN [None]
  - GASTRITIS [None]
  - NAUSEA [None]
  - OESOPHAGITIS [None]
  - PANCREATITIS [None]
  - VOMITING [None]
